FAERS Safety Report 12083089 (Version 3)
Quarter: 2016Q2

REPORT INFORMATION
  Report Type: Spontaneous
  Country: VE (occurrence: VE)
  Receive Date: 20160217
  Receipt Date: 20160406
  Transmission Date: 20160815
  Serious: Yes (Other)
  Sender: FDA-Public Use
  Company Number: VE-ORION CORPORATION ORION PHARMA-ENTC2016-0011

PATIENT
  Sex: Female

DRUGS (8)
  1. ASPIRIN. [Concomitant]
     Active Substance: ASPIRIN
     Route: 065
  2. VITAMIN C [Concomitant]
     Active Substance: ASCORBIC ACID
     Route: 065
  3. STALEVO [Suspect]
     Active Substance: CARBIDOPA\ENTACAPONE\LEVODOPA
     Dosage: 75 MG; 75 MG SPLIT IN HALF
     Route: 048
  4. STALEVO [Suspect]
     Active Substance: CARBIDOPA\ENTACAPONE\LEVODOPA
     Indication: PARKINSON^S DISEASE
     Route: 048
     Dates: start: 2011
  5. FOLIC ACID. [Concomitant]
     Active Substance: FOLIC ACID
     Route: 065
  6. MIOVIT [Concomitant]
     Route: 065
  7. ASAPROL [Concomitant]
     Active Substance: ASPIRIN
     Route: 065
  8. EZOLIUM [Concomitant]
     Route: 065

REACTIONS (11)
  - Product supply issue [Unknown]
  - General physical health deterioration [Unknown]
  - Parkinson^s disease [Not Recovered/Not Resolved]
  - Incorrect dosage administered [Unknown]
  - Eating disorder [Not Recovered/Not Resolved]
  - Malaise [Unknown]
  - Wrong technique in product usage process [Unknown]
  - Speech disorder [Not Recovered/Not Resolved]
  - Off label use [Unknown]
  - Asthenia [Not Recovered/Not Resolved]
  - Musculoskeletal stiffness [Not Recovered/Not Resolved]
